FAERS Safety Report 20792460 (Version 1)
Quarter: 2022Q2

REPORT INFORMATION
  Report Type: Spontaneous
  Country: US (occurrence: US)
  Receive Date: 20220506
  Receipt Date: 20220506
  Transmission Date: 20220721
  Serious: No
  Sender: FDA-Public Use
  Company Number: US-BRISTOL-MYERS SQUIBB COMPANY-2022-018920

PATIENT
  Age: 60 Year
  Sex: Female

DRUGS (1)
  1. REVLIMID [Suspect]
     Active Substance: LENALIDOMIDE
     Indication: Plasma cell myeloma
     Route: 048
     Dates: start: 201612

REACTIONS (7)
  - Fatigue [Unknown]
  - Spinal pain [Unknown]
  - Visual impairment [Unknown]
  - Rash [Unknown]
  - Insomnia [Unknown]
  - Oropharyngeal pain [Unknown]
  - Eye pain [Unknown]
